FAERS Safety Report 5575991-6 (Version None)
Quarter: 2007Q4

REPORT INFORMATION
  Report Type: 
  Country: None (occurrence: None)
  Receive Date: 20071226
  Receipt Date: 20071212
  Transmission Date: 20080405
  Serious: Yes (Congenital Anomaly, Other)
  Sender: FDA-Public Use
  Company Number: GXKR2007GB10659

PATIENT
  Sex: Male
  Weight: 3.8 kg

DRUGS (2)
  1. ACETAMINOPHEN AND CODEINE PHOSPHATE [Suspect]
     Dosage: TRANSPLACENTAL
     Route: 064
  2. ARAVA [Suspect]
     Dosage: TRANSPLACENTAL; 10 MG, TRANSPLACENTAL
     Route: 064

REACTIONS (5)
  - CAESAREAN SECTION [None]
  - DRUG EXPOSURE DURING PREGNANCY [None]
  - ERB'S PALSY [None]
  - FOETAL DISTRESS SYNDROME [None]
  - SHOULDER DYSTOCIA [None]
